FAERS Safety Report 9997995 (Version 2)
Quarter: 2014Q2

REPORT INFORMATION
  Report Type: Spontaneous
  Country: IT (occurrence: IT)
  Receive Date: 20140311
  Receipt Date: 20140512
  Transmission Date: 20141212
  Serious: Yes (Hospitalization)
  Sender: FDA-Public Use
  Company Number: IT-PFIZER INC-2014066045

PATIENT
  Age: 83 Year
  Sex: Male

DRUGS (6)
  1. DIFLUCAN [Suspect]
     Dosage: 200 MG, DAILY
     Route: 041
     Dates: start: 20120617, end: 20120630
  2. FIDATO [Suspect]
     Dosage: 1 DF, DAILY
     Route: 041
     Dates: start: 20120617, end: 20120623
  3. COUMADIN [Concomitant]
  4. NORVASC [Concomitant]
  5. CORDARONE [Concomitant]
  6. TRIATEC [Concomitant]

REACTIONS (1)
  - Clostridium difficile colitis [Recovered/Resolved]
